FAERS Safety Report 9773705 (Version 2)
Quarter: 2013Q4

REPORT INFORMATION
  Report Type: Spontaneous
  Country: IE (occurrence: None)
  Receive Date: 20131218
  Receipt Date: 20131226
  Transmission Date: 20140711
  Serious: Yes (Hospitalization)
  Sender: FDA-Public Use
  Company Number: DSM-2013-00452

PATIENT
  Age: 61 Year
  Sex: Male

DRUGS (5)
  1. OMESAR [Suspect]
     Indication: HYPERTENSION
     Route: 048
     Dates: start: 20110802, end: 20130719
  2. ULCID [Concomitant]
  3. TENORET (CHLORTALIDONE, ATENOLOL) (50 MILLIGRAM) (CHLORTALIDONE, ATENOLOL) [Concomitant]
  4. ASPIRIN (ACCETYLSALICYLIC ACID) (75 MILLIGRAM) (ACETYLSALICYLIC ACID) [Concomitant]
  5. DIOVAN (VALSARTAN (40 MILLIGRAM) (VALSARTAN) [Concomitant]

REACTIONS (2)
  - Hypotension [None]
  - Circulatory collapse [None]
